FAERS Safety Report 15299389 (Version 1)
Quarter: 2018Q3

REPORT INFORMATION
  Report Type: Report from Study
  Country: ZA (occurrence: ZA)
  Receive Date: 20180821
  Receipt Date: 20180821
  Transmission Date: 20181010
  Serious: Yes (Death, Hospitalization, Other)
  Sender: FDA-Public Use
  Company Number: ZA-BRISTOL-MYERS SQUIBB COMPANY-BMS-2018-075555

PATIENT
  Age: 18 Year
  Sex: Female

DRUGS (2)
  1. HEPARIN SODIUM. [Suspect]
     Active Substance: HEPARIN SODIUM
     Indication: ANTICOAGULANT THERAPY
     Dosage: UNK
     Route: 042
  2. WARFARIN SODIUM. [Suspect]
     Active Substance: WARFARIN SODIUM
     Indication: ANTICOAGULANT THERAPY
     Dosage: UNK
     Route: 065

REACTIONS (7)
  - Prosthetic cardiac valve thrombosis [Fatal]
  - Acute kidney injury [Unknown]
  - Endocarditis [Unknown]
  - Anticoagulation drug level above therapeutic [Unknown]
  - Live birth [Unknown]
  - Disseminated intravascular coagulation [Unknown]
  - Maternal exposure during pregnancy [Recovered/Resolved]
